FAERS Safety Report 8882181 (Version 1)
Quarter: 2012Q4

REPORT INFORMATION
  Report Type: 
  Country: US (occurrence: US)
  Receive Date: 20121102
  Receipt Date: 20121102
  Transmission Date: 20130627
  Serious: Yes (Hospitalization, Disabling, Other)
  Sender: FDA-Public Use
  Company Number: US-SANOFI-AVENTIS-2012SA077886

PATIENT
  Age: 69 Year
  Sex: Female

DRUGS (3)
  1. LANTUS [Suspect]
     Dosage: Dose:40 unit(s)
     Route: 058
     Dates: start: 2007
  2. SOLOSTAR [Suspect]
     Dates: start: 2007
  3. INSULIN HUMULIN 70/30 [Concomitant]

REACTIONS (3)
  - Lung neoplasm malignant [Recovered/Resolved]
  - Cardiac arrest [Recovered/Resolved]
  - Pneumonia [Recovered/Resolved]
